FAERS Safety Report 18046336 (Version 2)
Quarter: 2020Q3

REPORT INFORMATION
  Report Type: Spontaneous
  Country: US (occurrence: US)
  Receive Date: 20200721
  Receipt Date: 20200828
  Transmission Date: 20201103
  Serious: No
  Sender: FDA-Public Use
  Company Number: US-SHIRE-US202023285

PATIENT
  Age: 56 Year
  Sex: Female

DRUGS (6)
  1. MOTEGRITY [Suspect]
     Active Substance: PRUCALOPRIDE SUCCINATE
     Indication: IRRITABLE BOWEL SYNDROME
     Dosage: 2 MILLIGRAM, 1X/DAY:QD
     Route: 065
     Dates: start: 20200708
  2. LINZESS [Concomitant]
     Active Substance: LINACLOTIDE
     Indication: PRODUCT USED FOR UNKNOWN INDICATION
  3. FLAXSEED [Concomitant]
     Active Substance: FLAX SEED
     Indication: PRODUCT USED FOR UNKNOWN INDICATION
  4. STOOL SOFTENER (DOCUSATE) [Concomitant]
     Active Substance: DOCUSATE
     Indication: PRODUCT USED FOR UNKNOWN INDICATION
  5. BENEFIBER [Concomitant]
     Active Substance: STARCH, WHEAT
     Indication: PRODUCT USED FOR UNKNOWN INDICATION
  6. AMITIZA [Concomitant]
     Active Substance: LUBIPROSTONE
     Indication: PRODUCT USED FOR UNKNOWN INDICATION

REACTIONS (5)
  - Muscle strain [Unknown]
  - Feeling abnormal [Unknown]
  - Drug ineffective [Unknown]
  - Agitation [Unknown]
  - Fatigue [Unknown]
